FAERS Safety Report 7272442-0 (Version None)
Quarter: 2011Q1

REPORT INFORMATION
  Report Type: 
  Country: None (occurrence: None)
  Receive Date: 20110131
  Receipt Date: 20110131
  Transmission Date: 20110831
  Serious: Yes (Hospitalization)
  Sender: FDA-Public Use
  Company Number: None

PATIENT
  Age: 59 Year
  Sex: Male
  Weight: 74.1 kg

DRUGS (6)
  1. VANCOMYCIN [Suspect]
     Indication: INFECTION
     Dosage: 750 MG BID IV
     Route: 042
     Dates: start: 20101217, end: 20110106
  2. VANCOMYCIN [Suspect]
     Indication: SURGERY
     Dosage: 750 MG BID IV
     Route: 042
     Dates: start: 20101217, end: 20110106
  3. VANCOMYCIN [Suspect]
     Indication: TOE AMPUTATION
     Dosage: 750 MG BID IV
     Route: 042
     Dates: start: 20101217, end: 20110106
  4. PIPERACILLIN/TAZOBACTAM [Suspect]
     Indication: SURGERY
     Dosage: 3.375 GM QID IV
     Route: 042
     Dates: start: 20101217, end: 20110101
  5. PIPERACILLIN/TAZOBACTAM [Suspect]
     Indication: INFECTION
     Dosage: 3.375 GM QID IV
     Route: 042
     Dates: start: 20101217, end: 20110101
  6. PIPERACILLIN/TAZOBACTAM [Suspect]
     Indication: TOE AMPUTATION
     Dosage: 3.375 GM QID IV
     Route: 042
     Dates: start: 20101217, end: 20110101

REACTIONS (13)
  - PANCYTOPENIA [None]
  - HAEMATURIA [None]
  - ANAEMIA [None]
  - RENAL FAILURE ACUTE [None]
  - HYPOTENSION [None]
  - HALLUCINATION [None]
  - LEUKOPENIA [None]
  - PYREXIA [None]
  - LUNG INFILTRATION [None]
  - WHEEZING [None]
  - MENTAL STATUS CHANGES [None]
  - TRANSAMINASES INCREASED [None]
  - BODY TEMPERATURE INCREASED [None]
